FAERS Safety Report 12470016 (Version 1)
Quarter: 2016Q2

REPORT INFORMATION
  Report Type: Report from Study
  Country: US (occurrence: US)
  Receive Date: 20160615
  Receipt Date: 20160615
  Transmission Date: 20160815
  Serious: Yes (Hospitalization, Other)
  Sender: FDA-Public Use
  Company Number: US-ROCHE-1775520

PATIENT

DRUGS (3)
  1. BEVACIZUMAB [Suspect]
     Active Substance: BEVACIZUMAB
     Indication: OVARIAN EPITHELIAL CANCER
     Route: 065
  2. PACLITAXEL. [Suspect]
     Active Substance: PACLITAXEL
     Indication: OVARIAN EPITHELIAL CANCER
     Route: 042
  3. CARBOPLATIN. [Suspect]
     Active Substance: CARBOPLATIN
     Indication: OVARIAN EPITHELIAL CANCER
     Route: 042

REACTIONS (20)
  - Hypersensitivity [Unknown]
  - Intestinal obstruction [Unknown]
  - Cardiomyopathy [Unknown]
  - Cardiac failure congestive [Unknown]
  - Neutropenia [Unknown]
  - Influenza [Unknown]
  - Urinary tract infection [Unknown]
  - Pneumonia [Unknown]
  - Device related infection [Unknown]
  - Depression [Unknown]
  - Nausea [Unknown]
  - Vomiting [Unknown]
  - Anaemia [Unknown]
  - Neuropathy peripheral [Unknown]
  - Diverticulitis [Unknown]
  - Fatigue [Unknown]
  - Acute myocardial infarction [Unknown]
  - Cellulitis [Unknown]
  - Clostridium difficile infection [Unknown]
  - Embolism venous [Unknown]
